FAERS Safety Report 4479372-8 (Version None)
Quarter: 2004Q4

REPORT INFORMATION
  Report Type: 
  Country: None (occurrence: None)
  Receive Date: 20041015
  Receipt Date: 20041004
  Transmission Date: 20050328
  Serious: Yes (Hospitalization)
  Sender: FDA-Public Use
  Company Number: 2004237323US

PATIENT
  Age: 48 Year
  Sex: Female
  Weight: 104.3 kg

DRUGS (9)
  1. MICRONASE [Suspect]
     Indication: DIABETES MELLITUS
     Dosage: 2.5 MG, QD, ORAL
     Route: 048
     Dates: start: 20040401
  2. LIPITOR [Concomitant]
  3. METFORMIN HCL [Concomitant]
  4. TOPROL-XL [Concomitant]
  5. MAXZIDE [Concomitant]
  6. IMDUR [Concomitant]
  7. NORVASC [Concomitant]
  8. PROZAC [Concomitant]
  9. ALLEGRA [Concomitant]

REACTIONS (8)
  - BLOOD GLUCOSE INCREASED [None]
  - CHEST PAIN [None]
  - DRUG INEFFECTIVE [None]
  - DYSPNOEA [None]
  - GENERALISED OEDEMA [None]
  - HEADACHE [None]
  - JOINT SWELLING [None]
  - MYALGIA [None]
